FAERS Safety Report 14443483 (Version 1)
Quarter: 2018Q1

REPORT INFORMATION
  Report Type: Spontaneous
  Country: US (occurrence: US)
  Receive Date: 20180125
  Receipt Date: 20180125
  Transmission Date: 20180509
  Serious: No
  Sender: FDA-Public Use
  Company Number: US-ELI_LILLY_AND_COMPANY-US201801010133

PATIENT
  Sex: Male

DRUGS (1)
  1. HUMULIN N [Suspect]
     Active Substance: INSULIN HUMAN
     Indication: TYPE 1 DIABETES MELLITUS
     Dosage: 36 U, EACH MORNING
     Route: 058
     Dates: start: 2000, end: 2001

REACTIONS (6)
  - Overweight [Unknown]
  - Eye disorder [Unknown]
  - Malaise [Unknown]
  - Tooth disorder [Unknown]
  - Scar [Unknown]
  - Blood glucose decreased [Unknown]
